FAERS Safety Report 15888366 (Version 1)
Quarter: 2019Q1

REPORT INFORMATION
  Report Type: Report from Study
  Country: US (occurrence: US)
  Receive Date: 20190130
  Receipt Date: 20190130
  Transmission Date: 20190417
  Serious: Yes (Death, Other)
  Sender: FDA-Public Use
  Company Number: US-ROCHE-1861721

PATIENT
  Sex: Male

DRUGS (1)
  1. ALTEPLASE. [Suspect]
     Active Substance: ALTEPLASE
     Indication: CEREBROVASCULAR ACCIDENT
     Dosage: ROUTE: INTRAVENTRICULAR CATHETER
     Route: 050

REACTIONS (5)
  - Coronary artery disease [Unknown]
  - Respiratory failure [Recovered/Resolved]
  - Cerebral ischaemia [Recovered/Resolved]
  - Cardiac failure congestive [Fatal]
  - Haemorrhage intracranial [Recovered/Resolved]

NARRATIVE: CASE EVENT DATE: 20160928
